FAERS Safety Report 23108483 (Version 1)
Quarter: 2023Q4

REPORT INFORMATION
  Report Type: Spontaneous
  Country: US (occurrence: US)
  Receive Date: 20231026
  Receipt Date: 20231026
  Transmission Date: 20240110
  Serious: Yes (Life-Threatening, Hospitalization, Other)
  Sender: FDA-Public Use
  Company Number: US-MLMSERVICE-20231005-4586312-1

PATIENT
  Age: 74 Year
  Sex: Female

DRUGS (7)
  1. DILTIAZEM [Concomitant]
     Active Substance: DILTIAZEM
     Indication: Product used for unknown indication
     Dosage: 300 MILLIGRAM, QD
     Route: 065
  2. FUROSEMIDE [Concomitant]
     Active Substance: FUROSEMIDE
     Indication: Product used for unknown indication
     Dosage: 20 MILLIGRAM, QD
     Route: 065
  3. LISINOPRIL [Concomitant]
     Active Substance: LISINOPRIL
     Indication: Product used for unknown indication
     Dosage: 2.5 MILLIGRAM, QD
     Route: 065
  4. METOPROLOL TARTRATE [Concomitant]
     Active Substance: METOPROLOL TARTRATE
     Indication: Product used for unknown indication
     Dosage: 100 MILLIGRAM, Q12H
     Route: 065
  5. SPIRONOLACTONE [Concomitant]
     Active Substance: SPIRONOLACTONE
     Indication: Product used for unknown indication
     Dosage: 50 MILLIGRAM, QD
     Route: 065
  6. DIGOXIN [Interacting]
     Active Substance: DIGOXIN
     Indication: Product used for unknown indication
     Dosage: 125 MILLIGRAM, QD
     Route: 065
  7. SULFAMETHOXAZOLE AND TRIMETHOPRIM [Interacting]
     Active Substance: SULFAMETHOXAZOLE\TRIMETHOPRIM
     Indication: Urinary tract infection
     Dosage: UNKNOWN
     Route: 065

REACTIONS (5)
  - Hyperkalaemia [Recovering/Resolving]
  - Acute kidney injury [Recovering/Resolving]
  - Hyperglycaemia [Recovering/Resolving]
  - Toxicity to various agents [Recovering/Resolving]
  - Drug interaction [Recovering/Resolving]
